FAERS Safety Report 7691004-4 (Version None)
Quarter: 2011Q3

REPORT INFORMATION
  Report Type: 
  Country: None (occurrence: None)
  Receive Date: 20110818
  Receipt Date: 20110811
  Transmission Date: 20111222
  Serious: Yes (Other)
  Sender: FDA-Public Use
  Company Number: US-PFIZER INC-2011186140

PATIENT
  Sex: Male

DRUGS (1)
  1. TOVIAZ [Suspect]
     Dosage: UNK

REACTIONS (4)
  - DELUSION [None]
  - HALLUCINATION [None]
  - PSYCHOTIC DISORDER [None]
  - URINARY RETENTION [None]
